FAERS Safety Report 16476755 (Version 1)
Quarter: 2019Q2

REPORT INFORMATION
  Report Type: Report from Study
  Country: None (occurrence: US)
  Receive Date: 20190626
  Receipt Date: 20190626
  Transmission Date: 20190711
  Serious: Yes (Hospitalization, Other)
  Sender: FDA-Public Use
  Company Number: US-ABBVIE-19K-163-2832849-00

PATIENT
  Sex: Female

DRUGS (1)
  1. HUMIRA [Suspect]
     Active Substance: ADALIMUMAB
     Indication: CROHN^S DISEASE
     Route: 058

REACTIONS (6)
  - Fatigue [Not Recovered/Not Resolved]
  - Bladder perforation [Recovering/Resolving]
  - Hospitalisation [Recovered/Resolved]
  - Sleep deficit [Unknown]
  - Frequent bowel movements [Recovered/Resolved]
  - Urinary tract infection [Unknown]
